FAERS Safety Report 23050630 (Version 5)
Quarter: 2024Q2

REPORT INFORMATION
  Report Type: Report from Study
  Country: US (occurrence: US)
  Receive Date: 20231010
  Receipt Date: 20240611
  Transmission Date: 20240717
  Serious: Yes (Other)
  Sender: FDA-Public Use
  Company Number: US-ABBVIE-5442248

PATIENT
  Sex: Female

DRUGS (5)
  1. VENCLEXTA [Suspect]
     Active Substance: VENETOCLAX
     Indication: Acute myeloid leukaemia
     Dosage: FORM STRENGTH: 100 MG
     Route: 048
     Dates: start: 202309, end: 202309
  2. VENCLEXTA [Suspect]
     Active Substance: VENETOCLAX
     Indication: Acute myeloid leukaemia
     Dosage: MISSED ONE DOSE?FORM STRENGTH: 100 MG
     Route: 048
     Dates: start: 202309, end: 202309
  3. VENCLEXTA [Suspect]
     Active Substance: VENETOCLAX
     Indication: Acute myeloid leukaemia
     Dosage: FORM STRENGTH: 100 MG?START DATE SEP 2023
     Route: 048
     Dates: end: 20231108
  4. VENCLEXTA [Suspect]
     Active Substance: VENETOCLAX
     Indication: Acute myeloid leukaemia
     Dosage: DRUG END DATE SEP 2023?FORM STRENGTH: 100 MG
     Route: 048
     Dates: start: 20230919
  5. VENCLEXTA [Suspect]
     Active Substance: VENETOCLAX
     Indication: Acute myeloid leukaemia
     Dosage: FORM STRENGTH: 100 MG?START DATE SEP 2023
     Route: 048
     Dates: start: 20231113

REACTIONS (13)
  - Surgery [Unknown]
  - Full blood count decreased [Unknown]
  - White blood cell count decreased [Unknown]
  - Orthostatic tremor [Unknown]
  - Diarrhoea [Unknown]
  - Diverticulitis [Unknown]
  - Procedural complication [Unknown]
  - Asthenia [Unknown]
  - Dehydration [Unknown]
  - Blood culture positive [Unknown]
  - Vesical fistula [Unknown]
  - Infection susceptibility increased [Unknown]
  - Gastrointestinal disorder [Unknown]

NARRATIVE: CASE EVENT DATE: 20230101
